FAERS Safety Report 16927759 (Version 1)
Quarter: 2019Q4

REPORT INFORMATION
  Report Type: Spontaneous
  Country: IN (occurrence: IN)
  Receive Date: 20191016
  Receipt Date: 20191016
  Transmission Date: 20200122
  Serious: Yes (Other)
  Sender: FDA-Public Use
  Company Number: PHHY2019IN212398

PATIENT
  Age: 55 Year
  Sex: Female

DRUGS (1)
  1. TERBINAFINE. [Suspect]
     Active Substance: TERBINAFINE
     Indication: DERMATOPHYTOSIS
     Dosage: 250 MG, BID
     Route: 065

REACTIONS (3)
  - Tinea infection [Recovering/Resolving]
  - Dermatophytosis [Recovering/Resolving]
  - Condition aggravated [Recovering/Resolving]
